FAERS Safety Report 25664080 (Version 2)
Quarter: 2025Q3

REPORT INFORMATION
  Report Type: Spontaneous
  Country: ZA (occurrence: ZA)
  Receive Date: 20250811
  Receipt Date: 20250930
  Transmission Date: 20251021
  Serious: Yes (Other)
  Sender: MACLEODS
  Company Number: ZA-MACLEODS PHARMA-MAC2025054477

PATIENT

DRUGS (7)
  1. RIVASTIGMINE [Suspect]
     Active Substance: RIVASTIGMINE
     Indication: Progressive supranuclear palsy
     Dosage: 1.5MG IN THE EVENING ONLY, 3 WEEKS LATER DRUG WAS STOPPED
     Route: 048
     Dates: start: 20250612
  2. ERGOCALCIFEROL [Concomitant]
     Active Substance: ERGOCALCIFEROL
     Indication: Product used for unknown indication
     Route: 065
  3. Lyrica/Neurica [Concomitant]
     Indication: Pain
     Dosage: AT NIGHT, BEFORE 19 AUG 2024
     Route: 065
  4. Dulane [Concomitant]
     Indication: Depression
     Route: 065
  5. Dulane [Concomitant]
     Indication: Pain
  6. THIAMINE [Concomitant]
     Active Substance: THIAMINE
     Route: 065
     Dates: start: 20240819
  7. VITAMIN B12 [Concomitant]
     Active Substance: CYANOCOBALAMIN
     Indication: Vitamin B12 deficiency
     Route: 065

REACTIONS (1)
  - Pemphigoid [Recovering/Resolving]

NARRATIVE: CASE EVENT DATE: 20250702
